FAERS Safety Report 4351532-6 (Version None)
Quarter: 2004Q2

REPORT INFORMATION
  Report Type: 
  Country: None (occurrence: None)
  Receive Date: 20040428
  Receipt Date: 20040409
  Transmission Date: 20050107
  Serious: Yes (Hospitalization)
  Sender: FDA-Public Use
  Company Number: US_0404102224

PATIENT
  Age: 72 Year
  Sex: Female
  Weight: 98 kg

DRUGS (2)
  1. HUMALOG [Suspect]
     Dosage: 50 U DAY
     Dates: start: 20000101
  2. HUMULIN R [Suspect]
     Dates: start: 20000101

REACTIONS (6)
  - CORONARY ARTERY OCCLUSION [None]
  - FEELING HOT [None]
  - HYPERHIDROSIS [None]
  - OEDEMA PERIPHERAL [None]
  - PHARMACEUTICAL PRODUCT COMPLAINT [None]
  - PULMONARY OEDEMA [None]
